FAERS Safety Report 14176200 (Version 1)
Quarter: 2017Q4

REPORT INFORMATION
  Report Type: Spontaneous
  Country: JP (occurrence: JP)
  Receive Date: 20171109
  Receipt Date: 20171109
  Transmission Date: 20180321
  Serious: Yes (Life-Threatening, Hospitalization)
  Sender: FDA-Public Use
  Company Number: JP-ALLERGAN-1763740US

PATIENT
  Age: 78 Year
  Sex: Male

DRUGS (5)
  1. VALIXA [Suspect]
     Active Substance: VALGANCICLOVIR
     Dosage: 450 MG, QD
     Route: 048
     Dates: start: 20151128, end: 20160526
  2. URSODEOXYCHOLIC ACID - BP [Suspect]
     Active Substance: URSODIOL
     Indication: PRODUCT USED FOR UNKNOWN INDICATION
     Dosage: 50 MG, TID
     Route: 048
  3. VALIXA [Suspect]
     Active Substance: VALGANCICLOVIR
     Indication: CYTOMEGALOVIRUS CHORIORETINITIS
     Dosage: 900 MG, QD
     Route: 048
     Dates: start: 20150930, end: 20151109
  4. DENOSINE [Suspect]
     Active Substance: GANCICLOVIR
     Indication: CYTOMEGALOVIRUS CHORIORETINITIS
     Dosage: 120 MG, BID
     Route: 042
     Dates: start: 20150917, end: 20150930
  5. DENOSINE [Suspect]
     Active Substance: GANCICLOVIR
     Dosage: 300 MG/0.075 ML INTRAVITREAL
     Route: 031
     Dates: start: 20150917

REACTIONS (3)
  - Pancytopenia [Recovered/Resolved]
  - Pneumocystis jirovecii pneumonia [Recovered/Resolved]
  - Immune recovery uveitis [Recovered/Resolved]

NARRATIVE: CASE EVENT DATE: 20151020
